FAERS Safety Report 23281529 (Version 3)
Quarter: 2024Q1

REPORT INFORMATION
  Report Type: Spontaneous
  Country: BG (occurrence: BG)
  Receive Date: 20231211
  Receipt Date: 20240105
  Transmission Date: 20240409
  Serious: Yes (Hospitalization, Other)
  Sender: FDA-Public Use
  Company Number: BG-MACLEODS PHARMACEUTICALS US LTD-MAC2023044655

PATIENT

DRUGS (16)
  1. OLANZAPINE [Suspect]
     Active Substance: OLANZAPINE
     Indication: Product used for unknown indication
     Dosage: 0.5 DOSAGE FORM, QD; (FROM 6 YEARS), (NON MACLEODS PRODUCT), CARCINOGENIC POTENCY CLASS 5
     Route: 065
  2. VENLAFAXINE HYDROCHLORIDE [Suspect]
     Active Substance: VENLAFAXINE HYDROCHLORIDE
     Indication: Product used for unknown indication
     Dosage: 1 DOSAGE FORM, BID (2 TIMES ONE TABLET DAILY / FROM 6 YEARS)
     Route: 065
  3. BISOPROLOL FUMARATE [Suspect]
     Active Substance: BISOPROLOL FUMARATE
     Indication: Atrial fibrillation
     Dosage: 0.5 MILLIGRAM, BID (FROM 10 YEARS), (NON MACLEODS PRODUCT) (CARCINOGENIC POTENCY CLASS 4)
     Route: 065
  4. BISOPROLOL FUMARATE [Suspect]
     Active Substance: BISOPROLOL FUMARATE
     Indication: Hypertension
  5. DIGOXIN [Concomitant]
     Active Substance: DIGOXIN
     Indication: Atrial fibrillation
     Dosage: 0.5 DOSAGE FORM, QD,1 TIME DAILY HALF A TABLET
     Route: 065
  6. DIGOXIN [Concomitant]
     Active Substance: DIGOXIN
     Indication: Hypertension
  7. ELIQUIS [Concomitant]
     Active Substance: APIXABAN
     Indication: Atrial fibrillation
     Dosage: 0.5 DOSAGE FORM, BID,  2/3 YEARS
     Route: 065
  8. ELIQUIS [Concomitant]
     Active Substance: APIXABAN
     Indication: Hypertension
  9. NEXIUM [Concomitant]
     Active Substance: ESOMEPRAZOLE MAGNESIUM
     Indication: Product used for unknown indication
     Dosage: 0.5 DOSAGE FORM, QD (FROM 2 YEARS)
     Route: 065
  10. PREGABALIN [Concomitant]
     Active Substance: PREGABALIN
     Indication: Product used for unknown indication
     Dosage: 1 DOSAGE FORM, QD
     Route: 065
  11. BROMAZEPAM [Concomitant]
     Active Substance: BROMAZEPAM
     Indication: Product used for unknown indication
     Dosage: 1 DOSAGE FORM, QD, ONE OR HALF A TABLET, EVERY 2 DAYS
     Route: 065
  12. BROMAZEPAM [Concomitant]
     Active Substance: BROMAZEPAM
     Dosage: 0.5 DOSAGE FORM, BID, ONE OR HALF A TABLET, EVERY 2 DAYS
     Route: 065
  13. Hedonin [Concomitant]
     Indication: Product used for unknown indication
     Dosage: 2 DOSAGE FORM, BID, IN THE EVENING , ONE TO 2 TABLETS, EVERY 2 DAYS / FROM 5-6YEAR
     Route: 065
  14. Hedonin [Concomitant]
     Dosage: 1 DOSAGE FORM, BID, IN THE EVENING , ONE TO 2 TABLETS, EVERY 2 DAYS / FROM 5-6YEAR
     Route: 065
  15. ZOPICLONE [Concomitant]
     Active Substance: ZOPICLONE
     Indication: Product used for unknown indication
     Dosage: 0.5 DOSAGE FORM, QD, ONE HALF TO ONE TABLET EVERY TWO DAYS
     Route: 065
  16. ZOPICLONE [Concomitant]
     Active Substance: ZOPICLONE
     Dosage: 1 DOSAGE FORM, BID, ONE HALF TO ONE TABLET EVERY TWO DAYS / FROM 1 YEAR
     Route: 065

REACTIONS (2)
  - Basal cell carcinoma [Recovered/Resolved]
  - Product contamination [Unknown]

NARRATIVE: CASE EVENT DATE: 20170101
